FAERS Safety Report 4522669-3 (Version None)
Quarter: 2004Q4

REPORT INFORMATION
  Report Type: 
  Country: None (occurrence: None)
  Receive Date: 20041209
  Receipt Date: 20040824
  Transmission Date: 20050328
  Serious: Yes (Congenital Anomaly)
  Sender: FDA-Public Use
  Company Number: US-ABBOTT-04P-163-0271428-00

PATIENT
  Sex: Male
  Weight: 3.16 kg

DRUGS (5)
  1. KALETRA [Suspect]
     Indication: DRUG EXPOSURE DURING PREGNANCY
  2. NORVIR [Suspect]
     Indication: DRUG EXPOSURE DURING PREGNANCY
  3. AZT [Suspect]
     Indication: DRUG EXPOSURE DURING PREGNANCY
  4. TENOFOVIR [Suspect]
     Indication: DRUG EXPOSURE DURING PREGNANCY
  5. ATAZANAVIR [Suspect]
     Indication: DRUG EXPOSURE DURING PREGNANCY

REACTIONS (2)
  - DRUG EXPOSURE DURING PREGNANCY [None]
  - TRISOMY 18 [None]
